FAERS Safety Report 7549368-8 (Version None)
Quarter: 2011Q2

REPORT INFORMATION
  Report Type: 
  Country: None (occurrence: None)
  Receive Date: 20110615
  Receipt Date: 20031204
  Transmission Date: 20111010
  Serious: Yes (Hospitalization)
  Sender: FDA-Public Use
  Company Number: PHHO2003JP15732

PATIENT
  Sex: Female

DRUGS (3)
  1. SYMMETREL [Concomitant]
     Indication: PARKINSON'S DISEASE
  2. ARICEPT [Concomitant]
     Indication: DEMENTIA ALZHEIMER'S TYPE
  3. DIOVAN [Suspect]
     Indication: HYPERTENSION
     Dosage: 80 MG, QD
     Route: 048
     Dates: start: 20020228, end: 20020730

REACTIONS (1)
  - DEMENTIA ALZHEIMER'S TYPE [None]
